FAERS Safety Report 20532968 (Version 1)
Quarter: 2022Q1

REPORT INFORMATION
  Report Type: Spontaneous
  Country: RO (occurrence: RO)
  Receive Date: 20220301
  Receipt Date: 20220301
  Transmission Date: 20220423
  Serious: Yes (Hospitalization, Other)
  Sender: FDA-Public Use
  Company Number: RO-AMGEN-ROUSP2022032738

PATIENT
  Age: 32 Year
  Sex: Male

DRUGS (4)
  1. BLINCYTO [Suspect]
     Active Substance: BLINATUMOMAB
     Indication: B precursor type acute leukaemia
     Dosage: 9 MICROGRAM
     Route: 065
     Dates: start: 202103
  2. BLINCYTO [Suspect]
     Active Substance: BLINATUMOMAB
     Indication: Philadelphia chromosome negative
     Dosage: 28 MICROGRAM
     Route: 065
     Dates: start: 202104
  3. BLINCYTO [Suspect]
     Active Substance: BLINATUMOMAB
     Dosage: UNK
     Route: 065
     Dates: start: 202106
  4. DEXAMETHASONE [Concomitant]
     Active Substance: DEXAMETHASONE

REACTIONS (7)
  - Graft versus host disease in lung [Unknown]
  - Neurotoxicity [Unknown]
  - Graft versus host disease in skin [Unknown]
  - Graft versus host disease in liver [Recovering/Resolving]
  - Cytopenia [Unknown]
  - Cytomegalovirus gastrointestinal infection [Unknown]
  - Tremor [Unknown]

NARRATIVE: CASE EVENT DATE: 20210101
